FAERS Safety Report 6370895-3 (Version None)
Quarter: 2009Q3

REPORT INFORMATION
  Report Type: 
  Country: None (occurrence: None)
  Receive Date: 20090923
  Receipt Date: 20070521
  Transmission Date: 20100115
  Serious: Yes (Other)
  Sender: FDA-Public Use
  Company Number: US-ASTRAZENECA-2006UW23490

PATIENT
  Age: 16352 Day
  Sex: Male
  Weight: 90.7 kg

DRUGS (19)
  1. SEROQUEL [Suspect]
     Indication: PSYCHOTIC DISORDER
     Dosage: 25-100 MG
     Route: 048
     Dates: start: 20011116, end: 20061101
  2. SEROQUEL [Suspect]
     Indication: DEPRESSION
     Dosage: 25-100 MG
     Route: 048
     Dates: start: 20011116, end: 20061101
  3. SEROQUEL [Suspect]
     Indication: SCHIZOPHRENIA
     Dosage: 25-100 MG
     Route: 048
     Dates: start: 20011116, end: 20061101
  4. SEROQUEL [Suspect]
     Indication: SLEEP DISORDER
     Dosage: 25-100 MG
     Route: 048
     Dates: start: 20011116, end: 20061101
  5. SEROQUEL [Suspect]
     Indication: ANXIETY
     Dosage: 25-100 MG
     Route: 048
     Dates: start: 20011116, end: 20061101
  6. SEROQUEL [Suspect]
     Dosage: 25-200 MG
     Route: 048
     Dates: start: 20011116
  7. SEROQUEL [Suspect]
     Dosage: 25-200 MG
     Route: 048
     Dates: start: 20011116
  8. SEROQUEL [Suspect]
     Dosage: 25-200 MG
     Route: 048
     Dates: start: 20011116
  9. SEROQUEL [Suspect]
     Dosage: 25-200 MG
     Route: 048
     Dates: start: 20011116
  10. SEROQUEL [Suspect]
     Dosage: 25-200 MG
     Route: 048
     Dates: start: 20011116
  11. ZYPREXA [Suspect]
     Dosage: 5-20 MG
     Dates: start: 19990316
  12. ZYPREXA [Suspect]
     Dates: start: 19990101, end: 20030101
  13. GEODON [Concomitant]
     Dates: start: 20030101
  14. TRILAFON [Concomitant]
     Dates: start: 19981101
  15. LEXAPRO [Concomitant]
     Dates: start: 20060101
  16. TRAZODONE [Concomitant]
     Dates: start: 19990316
  17. LUVOX [Concomitant]
     Dates: start: 19990306
  18. LISINOPRIL [Concomitant]
     Dates: start: 20020829
  19. HYDROCHLOROTHIAZIDE [Concomitant]
     Dates: start: 20020829

REACTIONS (4)
  - BLOOD TRIGLYCERIDES INCREASED [None]
  - DIABETES MELLITUS [None]
  - HYPERLIPIDAEMIA [None]
  - PANCREATITIS [None]
